FAERS Safety Report 9955553 (Version 1)
Quarter: 2014Q1

REPORT INFORMATION
  Report Type: Report from Study
  Country: US (occurrence: US)
  Receive Date: 20140304
  Receipt Date: 20140304
  Transmission Date: 20141002
  Serious: No
  Sender: FDA-Public Use
  Company Number: US-ABBVIE-13P-163-1084210-00

PATIENT
  Age: 51 Year
  Sex: Male
  Weight: 108.96 kg

DRUGS (5)
  1. HUMIRA [Suspect]
     Indication: PSORIASIS
     Dosage: LOADING DOSE
     Dates: start: 201210, end: 201210
  2. HUMIRA [Suspect]
     Dates: start: 201210
  3. LORTAB [Concomitant]
     Indication: PAIN
  4. NEXIUM [Concomitant]
     Indication: GASTROOESOPHAGEAL REFLUX DISEASE
  5. UNKNOWN MEDICATION [Concomitant]
     Indication: BLOOD CHOLESTEROL

REACTIONS (7)
  - Drug ineffective [Not Recovered/Not Resolved]
  - Psoriasis [Not Recovered/Not Resolved]
  - Psoriasis [Not Recovered/Not Resolved]
  - Urticaria [Recovered/Resolved]
  - Psoriasis [Recovered/Resolved]
  - Dermatitis allergic [Recovered/Resolved]
  - Toothache [Recovered/Resolved]
